FAERS Safety Report 24681645 (Version 1)
Quarter: 2024Q4

REPORT INFORMATION
  Report Type: Spontaneous
  Country: FR (occurrence: FR)
  Receive Date: 20241130
  Receipt Date: 20241130
  Transmission Date: 20250114
  Serious: Yes (Death, Other)
  Sender: JAZZ
  Company Number: None

PATIENT

DRUGS (11)
  1. VYXEOS [Suspect]
     Active Substance: CYTARABINE\DAUNORUBICIN
     Indication: Acute myeloid leukaemia
     Dosage: 88 MG (44MG/M2) DAUNORUBICINE + 200 MG CYTARABINE (100MG/M2)
     Route: 042
     Dates: start: 20241114, end: 20241114
  2. VYXEOS [Suspect]
     Active Substance: CYTARABINE\DAUNORUBICIN
     Dosage: 88 MG (44MG/M2) DAUNORUBICINE + 200 MG CYTARABINE (100MG/M2)
     Route: 042
     Dates: start: 20241116, end: 20241116
  3. METOCLOPRAMIDE HYDROCHLORIDE [Concomitant]
     Active Substance: METOCLOPRAMIDE HYDROCHLORIDE
     Indication: Nausea
     Dosage: 10 MG PRN MAX 30 MG A DAY
     Route: 048
     Dates: start: 20241114
  4. ONDANSETRON [Concomitant]
     Active Substance: ONDANSETRON
     Indication: Nausea
     Dosage: 8 MG PRN MAX 2 A DAY
     Route: 048
     Dates: start: 20241114
  5. ALFUZOSIN [Concomitant]
     Active Substance: ALFUZOSIN
     Indication: Product used for unknown indication
     Dosage: 10 MILLIGRAM, QD
     Route: 048
  6. XANAX [Concomitant]
     Active Substance: ALPRAZOLAM
     Indication: Anxiety
     Dosage: 0.25 MILLIGRAM, BID
     Route: 048
     Dates: start: 20241108
  7. LOXAPINE SUCCINATE [Concomitant]
     Active Substance: LOXAPINE SUCCINATE
     Indication: Agitation
     Dosage: 35 DROPS IN THE MORNING, AT MIDDAY AND IN THE EVENING
     Route: 048
     Dates: start: 20241117
  8. ACUPAN [Concomitant]
     Active Substance: NEFOPAM HYDROCHLORIDE
     Indication: Pain
     Dosage: 20 MG PRN MAX 60 MG/DAY
     Route: 048
     Dates: start: 20241111
  9. VERAPAMIL HYDROCHLORIDE [Concomitant]
     Active Substance: VERAPAMIL HYDROCHLORIDE
     Indication: Product used for unknown indication
     Dosage: 240 MG IN THE MORNING AND IN THE EVENING
     Route: 048
     Dates: start: 20241108
  10. FLUINDIONE [Concomitant]
     Active Substance: FLUINDIONE
     Indication: Product used for unknown indication
     Dosage: 3/4 IN THE EVENING
  11. ACETAMINOPHEN\CODEINE PHOSPHATE [Concomitant]
     Active Substance: ACETAMINOPHEN\CODEINE PHOSPHATE
     Indication: Product used for unknown indication
     Dosage: EVERY 6 HOURS PRN UP TO 4 TABLETS/DAY

REACTIONS (1)
  - Acute respiratory distress syndrome [Fatal]

NARRATIVE: CASE EVENT DATE: 20241116
